FAERS Safety Report 20344738 (Version 5)
Quarter: 2022Q2

REPORT INFORMATION
  Report Type: Spontaneous
  Country: PL (occurrence: PL)
  Receive Date: 20220118
  Receipt Date: 20220404
  Transmission Date: 20220721
  Serious: Yes (Death, Life-Threatening, Hospitalization, Other)
  Sender: FDA-Public Use
  Company Number: PL-SUN PHARMACEUTICAL INDUSTRIES LTD-2022RR-323890

PATIENT
  Age: 34 Year
  Sex: Male

DRUGS (9)
  1. OLANZAPINE [Suspect]
     Active Substance: OLANZAPINE
     Indication: Schizophrenia
     Dosage: INITIALLY 10 MG/DAY, THEN INCREASED TO 20 MG/DAY
     Route: 048
  2. OLANZAPINE [Suspect]
     Active Substance: OLANZAPINE
     Dosage: INCREASED TO 20 MG IN 2 CONSECUTIVE DAYS
     Route: 048
  3. OLANZAPINE [Suspect]
     Active Substance: OLANZAPINE
     Dosage: 20 MG, UNKNOWN
     Route: 048
  4. OLANZAPINE [Suspect]
     Active Substance: OLANZAPINE
     Dosage: 10 MILLIGRAM, Q2D
     Route: 048
  5. OLANZAPINE [Suspect]
     Active Substance: OLANZAPINE
     Dosage: 19TH DAY OF HOSPITALISATION
     Route: 048
  6. OLANZAPINE [Suspect]
     Active Substance: OLANZAPINE
     Dosage: UNK, ORALLY DISINTEGRATING TABLETS
     Route: 048
  7. OLANZAPINE [Suspect]
     Active Substance: OLANZAPINE
     Dosage: 10 MG, UNKNOWN
     Route: 048
  8. HALOPERIDOL [Suspect]
     Active Substance: HALOPERIDOL
     Indication: Schizophrenia
     Dosage: 2.5 MG, PER DAY
     Route: 030
  9. HALOPERIDOL [Suspect]
     Active Substance: HALOPERIDOL
     Dosage: 2.5 MG, PER DAY
     Route: 030

REACTIONS (17)
  - Cardiac arrest [Fatal]
  - Pulmonary embolism [Fatal]
  - Pulmonary infarction [Fatal]
  - Drug ineffective [Fatal]
  - Malaise [Fatal]
  - Schizophrenia [Fatal]
  - Abdominal pain [Fatal]
  - Eating disorder [Fatal]
  - Nausea [Fatal]
  - Asthenia [Fatal]
  - Hallucination, auditory [Fatal]
  - Treatment noncompliance [Fatal]
  - Burning sensation [Fatal]
  - Negativism [Fatal]
  - Intentional dose omission [Fatal]
  - Chest pain [Fatal]
  - Vomiting [Fatal]
